FAERS Safety Report 8593990-7 (Version None)
Quarter: 2012Q3

REPORT INFORMATION
  Report Type: 
  Country: None (occurrence: None)
  Receive Date: 20120814
  Receipt Date: 20120730
  Transmission Date: 20120928
  Serious: Yes (Other)
  Sender: FDA-Public Use
  Company Number: IT-WATSON-2012-13957

PATIENT
  Age: 37 Year
  Sex: Male

DRUGS (3)
  1. LETROZOLE [Suspect]
     Indication: LYMPHANGIOLEIOMYOMATOSIS
     Dosage: 2.5 MG, DAILY
     Route: 048
  2. TRELSTAR [Suspect]
     Indication: LYMPHANGIOLEIOMYOMATOSIS
     Dosage: UNK
     Route: 065
  3. LEUPROLIDE ACETATE [Suspect]
     Indication: LYMPHANGIOLEIOMYOMATOSIS
     Dosage: 3.75 MG, Q MONTH
     Route: 030

REACTIONS (1)
  - HYPOGONADISM MALE [None]
